FAERS Safety Report 20331505 (Version 1)
Quarter: 2022Q1

REPORT INFORMATION
  Report Type: Spontaneous
  Country: US (occurrence: US)
  Receive Date: 20220113
  Receipt Date: 20220113
  Transmission Date: 20220423
  Serious: Yes (Hospitalization)
  Sender: FDA-Public Use
  Company Number: US-MYLANLABS-2022M1002285

PATIENT
  Age: 71 Year
  Sex: Female

DRUGS (4)
  1. HYDROXYCHLOROQUINE [Suspect]
     Active Substance: HYDROXYCHLOROQUINE
     Indication: Rheumatoid arthritis
     Dosage: 200 MILLIGRAM, QD
     Route: 048
  2. PREDNISONE [Suspect]
     Active Substance: PREDNISONE
     Indication: Rheumatoid arthritis
     Dosage: 20 MILLIGRAM, QD
     Route: 048
  3. LIDOCAINE [Suspect]
     Active Substance: LIDOCAINE
     Indication: Bundle branch block bilateral
     Dosage: RECEIVED 1.5 ML INJECTIONS AT EACH LEVEL AT THE JUNCTION OF THE SUPERIOR ARTICULAR PROCESS AND?.
     Route: 014
  4. ACETAMINOPHEN\OXYCODONE HYDROCHLORIDE [Concomitant]
     Active Substance: ACETAMINOPHEN\OXYCODONE HYDROCHLORIDE
     Indication: Back pain
     Dosage: UNK, BID, OXYCODONE/PARACETAMOL 5/325 MG
     Route: 065

REACTIONS (2)
  - Extradural abscess [Recovered/Resolved]
  - Spinal stenosis [Unknown]
